FAERS Safety Report 18157949 (Version 1)
Quarter: 2020Q3

REPORT INFORMATION
  Report Type: Spontaneous
  Country: GB (occurrence: GB)
  Receive Date: 20200817
  Receipt Date: 20200817
  Transmission Date: 20201103
  Serious: Yes (Other)
  Sender: FDA-Public Use
  Company Number: GB-PFIZER INC-2020308394

PATIENT
  Age: 42 Year
  Sex: Male

DRUGS (14)
  1. FLUOROURACIL. [Suspect]
     Active Substance: FLUOROURACIL
     Indication: RECTAL CANCER
     Dosage: 400MG/16ML
     Dates: start: 202006
  2. ATROPINE. [Concomitant]
     Active Substance: ATROPINE
  3. IRINOTECAN HCL [Suspect]
     Active Substance: IRINOTECAN HYDROCHLORIDE
     Indication: RECTAL CANCER
     Dosage: 360MG/250MLG
     Dates: start: 202006
  4. LANSOPRAZOLE. [Concomitant]
     Active Substance: LANSOPRAZOLE
  5. CHLORPHENAMINE [Concomitant]
     Active Substance: CHLORPHENIRAMINE MALEATE
  6. FLUOROURACIL. [Suspect]
     Active Substance: FLUOROURACIL
     Dosage: 4800MG/230ML
     Dates: start: 202006
  7. SODIUM CHLORIDE. [Concomitant]
     Active Substance: SODIUM CHLORIDE
  8. METOCLOPRAMIDE. [Concomitant]
     Active Substance: METOCLOPRAMIDE
  9. DIFFLAM [Concomitant]
     Active Substance: BENZYDAMINE HYDROCHLORIDE
  10. DEXAMETHASONE. [Concomitant]
     Active Substance: DEXAMETHASONE
  11. CALCIUM FOLINATE [Concomitant]
     Active Substance: LEUCOVORIN CALCIUM
  12. BEVACIZUMAB. [Suspect]
     Active Substance: BEVACIZUMAB
     Indication: RECTAL CANCER
     Dosage: 530MG/100ML
  13. ONDANSETRON [Concomitant]
     Active Substance: ONDANSETRON
  14. LOPERAMIDE [Concomitant]
     Active Substance: LOPERAMIDE

REACTIONS (7)
  - Skin disorder [Unknown]
  - Dyschezia [Unknown]
  - Dyspepsia [Unknown]
  - Mouth ulceration [Unknown]
  - Fatigue [Unknown]
  - Rectal haemorrhage [Unknown]
  - Taste disorder [Unknown]
